FAERS Safety Report 18986176 (Version 1)
Quarter: 2021Q1

REPORT INFORMATION
  Report Type: Spontaneous
  Country: US (occurrence: US)
  Receive Date: 20210309
  Receipt Date: 20210309
  Transmission Date: 20210420
  Serious: Yes (Life-Threatening, Hospitalization)
  Sender: FDA-Public Use
  Company Number: US-MYLANLABS-2021M1014240

PATIENT
  Age: 63 Year
  Sex: Male

DRUGS (4)
  1. ATROPINE. [Suspect]
     Active Substance: ATROPINE
     Indication: CARDIAC ARREST
  2. EPINEPHRINE. [Suspect]
     Active Substance: EPINEPHRINE
     Indication: ATRIOVENTRICULAR BLOCK
     Dosage: UNK
     Route: 065
  3. EPINEPHRINE. [Suspect]
     Active Substance: EPINEPHRINE
     Indication: CARDIAC ARREST
  4. ATROPINE. [Suspect]
     Active Substance: ATROPINE
     Indication: ATRIOVENTRICULAR BLOCK
     Dosage: UNK
     Route: 065

REACTIONS (2)
  - Mydriasis [Unknown]
  - Drug ineffective [Unknown]
